FAERS Safety Report 6706961-X (Version None)
Quarter: 2010Q2

REPORT INFORMATION
  Report Type: 
  Country: None (occurrence: None)
  Receive Date: 20100503
  Receipt Date: 20100310
  Transmission Date: 20101027
  Serious: Yes (Other)
  Sender: FDA-Public Use
  Company Number: US-MERCK-0905USA01820

PATIENT
  Age: 48 Year
  Sex: Female

DRUGS (14)
  1. ZOCOR [Suspect]
     Indication: HYPERLIPIDAEMIA
     Route: 048
     Dates: start: 20050601, end: 20060601
  2. ESCITALOPRAM [Concomitant]
     Route: 065
  3. LEVOTHYROXINE SODIUM [Suspect]
     Indication: HYPOTHYROIDISM
     Route: 065
     Dates: start: 20060801, end: 20070101
  4. LEVOTHYROXINE SODIUM [Suspect]
     Route: 065
     Dates: start: 20060601, end: 20060701
  5. LEVOTHYROXINE SODIUM [Suspect]
     Route: 065
     Dates: start: 20060701, end: 20060801
  6. LEVOTHYROXINE SODIUM [Suspect]
     Route: 065
     Dates: start: 20050701, end: 20060101
  7. LEVOTHYROXINE SODIUM [Suspect]
     Route: 065
     Dates: start: 20060101, end: 20060301
  8. LEVOTHYROXINE SODIUM [Suspect]
     Route: 065
     Dates: start: 20041201
  9. VYTORIN [Suspect]
     Indication: HYPERLIPIDAEMIA
     Route: 048
     Dates: start: 20060601
  10. ZETIA [Suspect]
     Indication: HYPERLIPIDAEMIA
     Route: 048
     Dates: start: 20060901
  11. CRESTOR [Suspect]
     Indication: HYPERLIPIDAEMIA
     Route: 065
     Dates: start: 20061001, end: 20070101
  12. WELCHOL [Concomitant]
     Indication: PULMONARY EMBOLISM
     Route: 065
     Dates: start: 20060901
  13. IODINE-131 [Concomitant]
     Route: 065
     Dates: start: 20060501
  14. WARFARIN [Concomitant]
     Route: 065

REACTIONS (3)
  - BLOOD CREATINE PHOSPHOKINASE INCREASED [None]
  - LOW DENSITY LIPOPROTEIN INCREASED [None]
  - MYOPATHY [None]
